FAERS Safety Report 8826165 (Version 2)
Quarter: 2012Q4

REPORT INFORMATION
  Report Type: 
  Country: IT (occurrence: IT)
  Receive Date: 20121005
  Receipt Date: 20121122
  Transmission Date: 20130627
  Serious: Yes (Other)
  Sender: FDA-Public Use
  Company Number: IT-ROCHE-1136250

PATIENT
  Sex: Female

DRUGS (6)
  1. VALGANCICLOVIR [Suspect]
     Indication: CYTOMEGALOVIRUS CHORIORETINITIS
     Route: 048
     Dates: start: 20120414, end: 20120415
  2. VALGANCICLOVIR [Suspect]
     Route: 065
     Dates: start: 20120401, end: 20120415
  3. BACTRIM [Suspect]
     Indication: PNEUMOCYSTIS JIROVECI PNEUMONIA
     Dosage: 160 mg + 800 mg tabs
     Route: 048
     Dates: start: 20120110, end: 20120111
  4. ATAZANAVIR [Concomitant]
     Route: 048
  5. RITONAVIR [Concomitant]
     Route: 065
  6. TRUVADA [Concomitant]
     Route: 048

REACTIONS (3)
  - Polyhydramnios [Unknown]
  - Premature labour [Unknown]
  - Exposure during pregnancy [Unknown]
